FAERS Safety Report 9696080 (Version 2)
Quarter: 2013Q4

REPORT INFORMATION
  Report Type: Spontaneous
  Country: JP (occurrence: JP)
  Receive Date: 20131119
  Receipt Date: 20131126
  Transmission Date: 20140711
  Serious: Yes (Hospitalization)
  Sender: FDA-Public Use
  Company Number: JP-B.I. PHARMACEUTICALS,INC./RIDGEFIELD-2013-BI-37255NB

PATIENT
  Age: 63 Year
  Sex: Male

DRUGS (4)
  1. TRAJENTA [Suspect]
     Indication: DIABETES MELLITUS
     Route: 048
  2. HUMALOG / INSULIN LISPRO(GENETICAL RECOMBINATION) [Concomitant]
     Route: 065
  3. LANTUS / INSULIN GLARGINE(GENETICAL RECOMBINATION) [Concomitant]
     Route: 065
  4. BAYASPIRIN / ASPIRIN [Concomitant]
     Route: 065

REACTIONS (1)
  - Ileus [Unknown]
